FAERS Safety Report 14868039 (Version 1)
Quarter: 2018Q2

REPORT INFORMATION
  Report Type: Spontaneous
  Country: FR (occurrence: FR)
  Receive Date: 20180509
  Receipt Date: 20180509
  Transmission Date: 20180711
  Serious: Yes (Other)
  Sender: FDA-Public Use
  Company Number: FR-MERCK KGAA-2047428

PATIENT
  Age: 53 Year
  Sex: Female
  Weight: 86 kg

DRUGS (2)
  1. NOVOTHYROX [Suspect]
     Active Substance: LEVOTHYROXINE SODIUM
     Indication: HYPOTHYROIDISM
     Route: 048
     Dates: start: 201708, end: 20170904
  2. LEVOTHYROX 125 NF [Suspect]
     Active Substance: LEVOTHYROXINE SODIUM
     Route: 048
     Dates: start: 201708, end: 20170904

REACTIONS (29)
  - Tinnitus [Recovering/Resolving]
  - Pain [Recovering/Resolving]
  - Muscle spasms [Recovering/Resolving]
  - Palpitations [Recovering/Resolving]
  - Disturbance in attention [Recovering/Resolving]
  - Chest pain [Recovering/Resolving]
  - Headache [Recovering/Resolving]
  - Hyperhidrosis [Recovering/Resolving]
  - Nausea [Recovering/Resolving]
  - Lack of spontaneous speech [Recovering/Resolving]
  - Vision blurred [Recovering/Resolving]
  - Tremor [Recovering/Resolving]
  - Alopecia [Recovering/Resolving]
  - Fatigue [Recovering/Resolving]
  - Dyspnoea [Recovering/Resolving]
  - Constipation [Recovering/Resolving]
  - Middle insomnia [Recovering/Resolving]
  - Asphyxia [Recovering/Resolving]
  - Irritability [Recovering/Resolving]
  - Loss of personal independence in daily activities [Recovering/Resolving]
  - Reflux gastritis [Recovering/Resolving]
  - Impaired driving ability [Recovering/Resolving]
  - Dizziness [Recovering/Resolving]
  - Chills [Recovering/Resolving]
  - Malaise [Recovering/Resolving]
  - Feeling abnormal [Recovering/Resolving]
  - Psychiatric symptom [Recovering/Resolving]
  - Pruritus [Recovering/Resolving]
  - Mood swings [Recovering/Resolving]

NARRATIVE: CASE EVENT DATE: 2017
